FAERS Safety Report 5420284-0 (Version None)
Quarter: 2007Q3

REPORT INFORMATION
  Report Type: 
  Country: None (occurrence: None)
  Receive Date: 20070718
  Receipt Date: 20060818
  Transmission Date: 20080115
  Serious: Yes (Hospitalization, Other)
  Sender: FDA-Public Use
  Company Number: 2006080536

PATIENT
  Age: 46 Year
  Sex: Male
  Weight: 116.5744 kg

DRUGS (8)
  1. CELEBREX [Suspect]
     Indication: ARTHRITIS
     Dosage: 200 MG (200 MG, 1 IN 1 D)
     Dates: start: 20010807
  2. VIOXX [Concomitant]
  3. ULTRAM [Concomitant]
  4. ACETAMINOPHEN [Concomitant]
  5. PERCOCET [Concomitant]
  6. MORPHINE [Concomitant]
  7. ASA (ACETYLSALICYCLIC ACID) [Concomitant]
  8. ADVIL [Concomitant]

REACTIONS (1)
  - MYOCARDIAL INFARCTION [None]
